FAERS Safety Report 10080263 (Version 2)
Quarter: 2014Q2

REPORT INFORMATION
  Report Type: Spontaneous
  Country: PL (occurrence: PL)
  Receive Date: 20140415
  Receipt Date: 20140421
  Transmission Date: 20141212
  Serious: Yes (Death)
  Sender: FDA-Public Use
  Company Number: PHHY2014PL043630

PATIENT
  Age: 2 Year
  Sex: Male

DRUGS (29)
  1. EDICIN [Suspect]
     Indication: SEPSIS
     Dosage: 150 MG, ONCE/SINGLE
     Route: 042
     Dates: start: 20130930, end: 20130930
  2. EDICIN [Suspect]
     Dosage: 150 MG, ONCE/SINGLE
     Route: 042
     Dates: start: 20131004, end: 20131004
  3. EDICIN [Suspect]
     Dosage: 150 MG, ONCE/SINGLE
     Route: 042
     Dates: start: 20131004, end: 20131004
  4. EDICIN [Suspect]
     Dosage: 150 MG, ONCE/SINGLE
     Route: 042
     Dates: start: 20131005, end: 20131005
  5. TAZOCIN [Concomitant]
     Indication: SEPSIS
     Dosage: 125 MG, BID
     Dates: start: 20130928, end: 20131004
  6. BISEPTOL [Concomitant]
     Indication: SEPSIS
     Dosage: 380 MG, QID
     Dates: start: 20131003, end: 20131004
  7. FLUCONAZOL [Concomitant]
     Indication: SEPSIS
     Dosage: 80 MG, QD
     Dates: start: 20130930, end: 20131004
  8. GANCICLOVIR [Concomitant]
     Indication: ANTIVIRAL TREATMENT
     Dosage: 30 MG, BID
     Dates: start: 20131003, end: 20131004
  9. CYTOTEC [Concomitant]
     Indication: ANTIVIRAL TREATMENT
     Dosage: 10 ML, ONCE/SINGLE
     Route: 041
     Dates: start: 20131003, end: 20131004
  10. LEVONOR [Concomitant]
     Indication: CARDIOVASCULAR FUNCTION TEST ABNORMAL
  11. DOPAMINE [Concomitant]
     Indication: CARDIOVASCULAR FUNCTION TEST ABNORMAL
  12. DOBUTAMIN [Concomitant]
     Indication: CARDIOVASCULAR FUNCTION TEST ABNORMAL
  13. PENTOXIFYLLINE [Concomitant]
     Indication: CARDIOVASCULAR FUNCTION TEST ABNORMAL
     Dates: start: 20130930, end: 20131004
  14. COROTROPE                               /FRA/ [Concomitant]
     Indication: CARDIOVASCULAR FUNCTION TEST ABNORMAL
     Dates: start: 20131003, end: 20131004
  15. DORMICUM                                /GFR/ [Concomitant]
     Indication: SEDATION
     Dates: start: 20130930, end: 20131004
  16. ZANTAC [Concomitant]
     Indication: ABDOMINAL DISCOMFORT
     Dosage: 15 MG, BID
     Dates: start: 20130930, end: 20131002
  17. CONTROLOC [Concomitant]
     Indication: ABDOMINAL DISCOMFORT
     Dates: start: 20131002, end: 20131004
  18. FRAXIPARINE [Concomitant]
     Indication: THROMBOSIS
     Dosage: 1450 U, UNK
  19. MUCOSOLVAN [Concomitant]
     Dosage: 7.5 MG, TID
     Dates: start: 20130930, end: 20131004
  20. DEXAVEN [Concomitant]
     Dosage: 2 MG, TID
     Dates: start: 20130930, end: 20131004
  21. CYCLONAMINE [Concomitant]
     Dosage: 125 MG, TID
     Dates: start: 20130930, end: 20131004
  22. ANTITHROMBIN III BAXTER [Concomitant]
     Dosage: 250 U, BID
     Dates: start: 20131001, end: 20131004
  23. PLATELET CONCENTRATE [Concomitant]
     Dates: start: 20131002, end: 20131004
  24. RED BLOOD CELLS [Concomitant]
     Dates: start: 20130930, end: 20130930
  25. RED BLOOD CELLS [Concomitant]
     Dates: start: 20131002, end: 20131002
  26. RED BLOOD CELLS [Concomitant]
     Dates: start: 20131004, end: 20131004
  27. FRESH FROZEN PLASMA [Concomitant]
     Dates: start: 20130930, end: 20130930
  28. FRESH FROZEN PLASMA [Concomitant]
     Dates: start: 20131002, end: 20131002
  29. FRESH FROZEN PLASMA [Concomitant]
     Dates: start: 20131004, end: 20131004

REACTIONS (3)
  - Drug level decreased [Fatal]
  - Wrong technique in drug usage process [Fatal]
  - Device issue [Fatal]
